FAERS Safety Report 25102946 (Version 1)
Quarter: 2025Q1

REPORT INFORMATION
  Report Type: Spontaneous
  Country: US (occurrence: US)
  Receive Date: 20250321
  Receipt Date: 20250321
  Transmission Date: 20250408
  Serious: Yes (Other)
  Sender: STRIDES
  Company Number: US-STRIDES ARCOLAB LIMITED-2025SP000795

PATIENT
  Age: 47 Year
  Sex: Male

DRUGS (16)
  1. GABAPENTIN [Suspect]
     Active Substance: GABAPENTIN
     Indication: Nervous system disorder
     Route: 065
  2. GABAPENTIN [Suspect]
     Active Substance: GABAPENTIN
     Indication: Gastrointestinal disorder
  3. NORTRIPTYLINE [Suspect]
     Active Substance: NORTRIPTYLINE
     Indication: Nervous system disorder
     Route: 065
  4. NORTRIPTYLINE [Suspect]
     Active Substance: NORTRIPTYLINE
     Indication: Gastrointestinal disorder
  5. DULOXETINE [Suspect]
     Active Substance: DULOXETINE
     Indication: Nervous system disorder
     Route: 065
  6. DULOXETINE [Suspect]
     Active Substance: DULOXETINE
     Indication: Gastrointestinal disorder
  7. LINACLOTIDE [Concomitant]
     Active Substance: LINACLOTIDE
     Indication: Nervous system disorder
     Route: 065
  8. LINACLOTIDE [Concomitant]
     Active Substance: LINACLOTIDE
     Indication: Gastrointestinal disorder
  9. PLECANATIDE [Concomitant]
     Active Substance: PLECANATIDE
     Indication: Nervous system disorder
     Route: 065
  10. PLECANATIDE [Concomitant]
     Active Substance: PLECANATIDE
     Indication: Gastrointestinal disorder
  11. LUBIPROSTONE [Concomitant]
     Active Substance: LUBIPROSTONE
     Indication: Nervous system disorder
     Route: 065
  12. LUBIPROSTONE [Concomitant]
     Active Substance: LUBIPROSTONE
     Indication: Gastrointestinal disorder
  13. PRUCALOPRIDE [Concomitant]
     Active Substance: PRUCALOPRIDE
     Indication: Nervous system disorder
     Route: 065
  14. PRUCALOPRIDE [Concomitant]
     Active Substance: PRUCALOPRIDE
     Indication: Gastrointestinal disorder
  15. TENAPANOR [Concomitant]
     Active Substance: TENAPANOR
     Indication: Nervous system disorder
     Route: 065
  16. TENAPANOR [Concomitant]
     Active Substance: TENAPANOR
     Indication: Gastrointestinal disorder

REACTIONS (1)
  - Drug ineffective for unapproved indication [Unknown]
